FAERS Safety Report 5457336-5 (Version None)
Quarter: 2007Q3

REPORT INFORMATION
  Report Type: 
  Country: None (occurrence: None)
  Receive Date: 20070918
  Receipt Date: 20070319
  Transmission Date: 20080115
  Serious: No
  Sender: FDA-Public Use
  Company Number: US-ASTRAZENECA-2007UW03317

PATIENT
  Age: 63 Year
  Sex: Female

DRUGS (4)
  1. SEROQUEL [Suspect]
     Route: 048
     Dates: start: 20060810
  2. SEROQUEL [Suspect]
     Route: 048
  3. AMBIEN [Concomitant]
     Indication: SLEEP APNOEA SYNDROME
     Route: 048
     Dates: start: 20061121
  4. WELLBUTRIN SR [Concomitant]
     Indication: DEPRESSION
     Route: 048
     Dates: start: 20060711

REACTIONS (5)
  - ASTHENIA [None]
  - BALANCE DISORDER [None]
  - FEELING ABNORMAL [None]
  - NASAL CONGESTION [None]
  - TREMOR [None]
